FAERS Safety Report 7870424-9 (Version None)
Quarter: 2011Q4

REPORT INFORMATION
  Report Type: 
  Country: None (occurrence: None)
  Receive Date: 20111029
  Receipt Date: 20110309
  Transmission Date: 20120403
  Serious: No
  Sender: FDA-Public Use
  Company Number: US-AMGEN-USASP2011013199

PATIENT
  Age: 58 Year
  Sex: Female
  Weight: 70.295 kg

DRUGS (3)
  1. PREDNISONE [Concomitant]
     Dosage: 5 MG, UNK
  2. ENBREL [Suspect]
     Indication: PRODUCT USED FOR UNKNOWN INDICATION
     Dosage: 50 MG, QWK
  3. RELAFEN [Concomitant]
     Dosage: 500 MG, UNK

REACTIONS (2)
  - NASOPHARYNGITIS [None]
  - PYREXIA [None]
